FAERS Safety Report 8521076-6 (Version None)
Quarter: 2012Q3

REPORT INFORMATION
  Report Type: 
  Country: None (occurrence: None)
  Receive Date: 20120719
  Receipt Date: 20120716
  Transmission Date: 20120928
  Serious: Yes (Hospitalization, Other)
  Sender: FDA-Public Use
  Company Number: AU-AMGEN-AUSSP2012043135

PATIENT
  Age: 59 Year
  Sex: Female

DRUGS (12)
  1. CIMZIA [Suspect]
     Indication: FELTY'S SYNDROME
  2. FOLIC ACID [Concomitant]
     Dosage: 5 MG, QD
     Route: 048
  3. CIMZIA [Suspect]
     Indication: RHEUMATOID ARTHRITIS
     Dosage: 200 MG, Q2WK
     Route: 058
     Dates: start: 20120101, end: 20120514
  4. PERINDOPRIL ERBUMINE [Concomitant]
     Dosage: 2.5 MG, UNK
     Route: 048
  5. MUPIROCIN [Concomitant]
     Dosage: UNK UNK, QID
     Route: 061
  6. PANTOPRAZOLE [Concomitant]
     Dosage: 40 MG, UNK
     Route: 048
  7. PREDNISOLONE [Concomitant]
     Dosage: 5 MG, BID
  8. CIPROFLOXACIN [Concomitant]
     Dosage: 500 MG, BID
     Route: 048
  9. CHOLECALCIFEROL [Concomitant]
     Route: 048
  10. FILGRASTIM [Suspect]
     Indication: FEBRILE NEUTROPENIA
     Dosage: UNK UNK, QD
     Dates: start: 20120517, end: 20120601
  11. ARTIFICIAL TEARS                   /00445101/ [Concomitant]
     Dosage: 3.5 G, UNK
     Route: 047
  12. CEFEPIME [Concomitant]
     Indication: FEBRILE NEUTROPENIA
     Dosage: UNK
     Route: 042
     Dates: start: 20120517

REACTIONS (4)
  - RHEUMATOID ARTHRITIS [None]
  - WHITE BLOOD CELL COUNT INCREASED [None]
  - FEBRILE NEUTROPENIA [None]
  - RASH [None]
